FAERS Safety Report 8002059-1 (Version None)
Quarter: 2011Q4

REPORT INFORMATION
  Report Type: 
  Country: None (occurrence: None)
  Receive Date: 20111222
  Receipt Date: 20111214
  Transmission Date: 20120403
  Serious: Yes (Hospitalization, Other)
  Sender: FDA-Public Use
  Company Number: PHHY2011US109024

PATIENT
  Age: 7 Year
  Sex: Male

DRUGS (6)
  1. PYRAZINAMIDE [Suspect]
     Indication: TUBERCULOSIS
  2. CEFTRIAXONE [Concomitant]
  3. FLUCONAZOLE [Concomitant]
  4. ISONIAZID [Suspect]
     Indication: TUBERCULOSIS
  5. ETHAMBUTOL HYDROCHLORIDE [Suspect]
     Indication: TUBERCULOSIS
  6. RIFAMPICIN [Suspect]
     Indication: TUBERCULOSIS
     Dosage: UNK

REACTIONS (13)
  - PYREXIA [None]
  - HEPATOSPLENOMEGALY [None]
  - OCULAR ICTERUS [None]
  - PERICARDIAL EFFUSION [None]
  - UNRESPONSIVE TO STIMULI [None]
  - WEIGHT INCREASED [None]
  - CACHEXIA [None]
  - LEUKOCYTOSIS [None]
  - ABDOMINAL DISTENSION [None]
  - ACUTE HEPATIC FAILURE [None]
  - ABDOMINAL TENDERNESS [None]
  - DISORIENTATION [None]
  - MIOSIS [None]
